APPROVED DRUG PRODUCT: POTASSIUM PHOSPHATES
Active Ingredient: POTASSIUM PHOSPHATE, DIBASIC; POTASSIUM PHOSPHATE, MONOBASIC
Strength: 3.54GM/15ML (236MG/ML);3.36GM/15ML (224MG/ML)
Dosage Form/Route: SOLUTION;INTRAVENOUS
Application: A217459 | Product #001 | TE Code: AP
Applicant: HOSPIRA INC
Approved: Sep 11, 2025 | RLD: No | RS: No | Type: RX